FAERS Safety Report 25535152 (Version 1)
Quarter: 2025Q3

REPORT INFORMATION
  Report Type: Spontaneous
  Country: US (occurrence: None)
  Receive Date: 20250709
  Receipt Date: 20250709
  Transmission Date: 20251021
  Serious: Yes (Hospitalization)
  Sender: FDA-CTU
  Company Number: None

PATIENT
  Sex: Male

DRUGS (5)
  1. TALZENNA [Suspect]
     Active Substance: TALAZOPARIB TOSYLATE
     Route: 048
     Dates: start: 20250322
  2. AMLODIPINE TAB 5MG [Concomitant]
  3. IELIGARD INJ 30MG [Concomitant]
  4. lXTANDI [Concomitant]
  5. lXTANDI TAB 80MG [Concomitant]

REACTIONS (1)
  - Hospitalisation [None]
